FAERS Safety Report 16186454 (Version 1)
Quarter: 2019Q2

REPORT INFORMATION
  Report Type: Spontaneous
  Country: JP (occurrence: JP)
  Receive Date: 20190411
  Receipt Date: 20190411
  Transmission Date: 20190711
  Serious: Yes (Death)
  Sender: FDA-Public Use
  Company Number: JP-BAYER-2019-069921

PATIENT
  Age: 72 Year
  Sex: Female

DRUGS (1)
  1. STIVARGA [Suspect]
     Active Substance: REGORAFENIB
     Indication: COLON CANCER
     Dosage: DAILY DOSE 80 MG, 3 WEEKS ON 1 WEEK OFF
     Route: 048
     Dates: start: 20181010, end: 20190312

REACTIONS (1)
  - Death [Fatal]

NARRATIVE: CASE EVENT DATE: 20190316
